FAERS Safety Report 6527739-6 (Version None)
Quarter: 2010Q1

REPORT INFORMATION
  Report Type: 
  Country: None (occurrence: None)
  Receive Date: 20100106
  Receipt Date: 20091222
  Transmission Date: 20100710
  Serious: Yes (Other)
  Sender: FDA-Public Use
  Company Number: US-RB-000008-10

PATIENT
  Age: 10 Year
  Sex: Female

DRUGS (1)
  1. MUCINEX CHILD BERRY [Suspect]
     Dosage: 2 TEASPOONS TWICE YESTERDAY AND ONCE TODAY
     Route: 048
     Dates: start: 20091221

REACTIONS (3)
  - AGGRESSION [None]
  - HEART RATE INCREASED [None]
  - HYPERHIDROSIS [None]
